FAERS Safety Report 8031883-4 (Version None)
Quarter: 2012Q1

REPORT INFORMATION
  Report Type: 
  Country: None (occurrence: None)
  Receive Date: 20120109
  Receipt Date: 20111227
  Transmission Date: 20120608
  Serious: Yes (Hospitalization)
  Sender: FDA-Public Use
  Company Number: PL-WATSON-2011-18340

PATIENT
  Age: 23 Year
  Sex: Female

DRUGS (3)
  1. ACETAMINOPHEN [Suspect]
     Indication: INFLUENZA LIKE ILLNESS
     Dosage: UNK
  2. IBUPROFEN [Suspect]
     Indication: INFLUENZA LIKE ILLNESS
     Dosage: UNK
  3. CLARITHROMYCIN [Suspect]
     Indication: INFLUENZA LIKE ILLNESS
     Dosage: UNK

REACTIONS (5)
  - HEPATIC FAILURE [None]
  - DERMATITIS EXFOLIATIVE [None]
  - MULTI-ORGAN FAILURE [None]
  - ANAEMIA [None]
  - ACUTE RESPIRATORY DISTRESS SYNDROME [None]
